FAERS Safety Report 8026217-5 (Version None)
Quarter: 2012Q1

REPORT INFORMATION
  Report Type: 
  Country: None (occurrence: None)
  Receive Date: 20120105
  Receipt Date: 20110228
  Transmission Date: 20120608
  Serious: No
  Sender: FDA-Public Use
  Company Number: US-ABBOTT-11P-163-0708766-00

PATIENT
  Age: 59 Year
  Sex: Male
  Weight: 79.45 kg

DRUGS (3)
  1. SYNTHROID [Suspect]
     Indication: HYPOTHYROIDISM
     Dates: start: 20110201
  2. TESTOSTERONE [Concomitant]
     Indication: BLOOD TESTOSTERONE DECREASED
  3. SYNTHROID [Suspect]
     Dates: start: 20070101, end: 20110201

REACTIONS (5)
  - DRUG INEFFECTIVE [None]
  - SOMNOLENCE [None]
  - FATIGUE [None]
  - LETHARGY [None]
  - FEELING ABNORMAL [None]
